FAERS Safety Report 10886107 (Version 1)
Quarter: 2015Q1

REPORT INFORMATION
  Report Type: Spontaneous
  Country: US (occurrence: None)
  Receive Date: 20150302
  Receipt Date: 20150302
  Transmission Date: 20150721
  Serious: Yes (Other)
  Sender: FDA-Public Use
  Company Number: 3000205847-2015-0001

PATIENT
  Age: 15 Year
  Sex: Female
  Weight: 52.16 kg

DRUGS (1)
  1. NITROUS OXIDE. [Suspect]
     Active Substance: NITROUS OXIDE
     Indication: ANALGESIC THERAPY
     Dosage: ICH-054???
     Dates: start: 20150213, end: 20150213

REACTIONS (2)
  - Muscle spasms [None]
  - Hypersensitivity [None]

NARRATIVE: CASE EVENT DATE: 20150213
